FAERS Safety Report 12600622 (Version 1)
Quarter: 2016Q3

REPORT INFORMATION
  Report Type: Spontaneous
  Country: GR (occurrence: GR)
  Receive Date: 20160727
  Receipt Date: 20160727
  Transmission Date: 20161109
  Serious: Yes (Other)
  Sender: FDA-Public Use
  Company Number: GR-FRESENIUS KABI-FK201604781

PATIENT
  Age: 8 Year
  Sex: Female

DRUGS (1)
  1. PROPOFOL 1% FRESENIUS [Suspect]
     Active Substance: PROPOFOL
     Indication: ADENOIDECTOMY
     Route: 042
     Dates: start: 20160422, end: 20160422

REACTIONS (3)
  - Administration site pain [Unknown]
  - Dermatitis allergic [Unknown]
  - Drug ineffective [Unknown]

NARRATIVE: CASE EVENT DATE: 20160422
